FAERS Safety Report 9775026 (Version 1)
Quarter: 2013Q4

REPORT INFORMATION
  Report Type: Spontaneous
  Country: US (occurrence: US)
  Receive Date: 20131220
  Receipt Date: 20131220
  Transmission Date: 20140711
  Serious: No
  Sender: FDA-Public Use
  Company Number: US-GLAXOSMITHKLINE-A1040271A

PATIENT
  Age: 71 Year
  Sex: Male

DRUGS (3)
  1. AVODART [Suspect]
     Indication: PROPHYLAXIS
     Dosage: .5MG PER DAY
     Route: 048
  2. JANUMET [Concomitant]
  3. UNKNOWN MEDICATION [Concomitant]

REACTIONS (4)
  - Retching [Recovered/Resolved]
  - Productive cough [Unknown]
  - Foreign body [Unknown]
  - Product quality issue [Unknown]
